FAERS Safety Report 25969803 (Version 1)
Quarter: 2025Q4

REPORT INFORMATION
  Report Type: Spontaneous
  Country: US (occurrence: US)
  Receive Date: 20251028
  Receipt Date: 20251028
  Transmission Date: 20260118
  Serious: No
  Sender: VERTEX
  Company Number: US-VERTEX PHARMACEUTICALS-2025-017743

PATIENT
  Sex: Female

DRUGS (2)
  1. SUZETRIGINE [Suspect]
     Active Substance: SUZETRIGINE
     Indication: Back pain
     Dosage: 50MG SUZETRIGINE
     Route: 048
     Dates: start: 202507, end: 20251015
  2. SUZETRIGINE [Suspect]
     Active Substance: SUZETRIGINE
     Indication: Trigeminal neuralgia

REACTIONS (2)
  - Musculoskeletal discomfort [Unknown]
  - Off label use [Unknown]

NARRATIVE: CASE EVENT DATE: 20250101
